FAERS Safety Report 6153510-3 (Version None)
Quarter: 2009Q2

REPORT INFORMATION
  Report Type: 
  Country: None (occurrence: None)
  Receive Date: 20090413
  Receipt Date: 20090403
  Transmission Date: 20091009
  Serious: Yes (Other)
  Sender: FDA-Public Use
  Company Number: PHEH2009US03498

PATIENT
  Sex: Male

DRUGS (7)
  1. ZOMETA [Suspect]
     Dosage: MONTHLY
  2. AREDIA [Suspect]
  3. PEPCID [Concomitant]
  4. SALAGEN [Concomitant]
  5. ZOLOFT [Concomitant]
  6. DILAUDID [Concomitant]
  7. COUMADIN [Concomitant]

REACTIONS (4)
  - BONE DISORDER [None]
  - DEBRIDEMENT [None]
  - ENDODONTIC PROCEDURE [None]
  - OSTEONECROSIS [None]
